FAERS Safety Report 15211851 (Version 3)
Quarter: 2019Q2

REPORT INFORMATION
  Report Type: Spontaneous
  Country: DK (occurrence: DK)
  Receive Date: 20180729
  Receipt Date: 20190627
  Transmission Date: 20190711
  Serious: Yes (Death, Life-Threatening, Hospitalization, Other)
  Sender: FDA-Public Use
  Company Number: PHHY2013DK176435

PATIENT

DRUGS (1)
  1. METHOTREXATE. [Suspect]
     Active Substance: METHOTREXATE
     Indication: RHEUMATOID ARTHRITIS
     Dosage: 10 MG, QD
     Route: 065

REACTIONS (6)
  - Inappropriate schedule of product administration [Fatal]
  - Septic shock [Fatal]
  - Off label use [Unknown]
  - Toxicity to various agents [Fatal]
  - Pancytopenia [Fatal]
  - Product administration error [Fatal]

NARRATIVE: CASE EVENT DATE: 2016
